FAERS Safety Report 13680332 (Version 1)
Quarter: 2017Q2

REPORT INFORMATION
  Report Type: Spontaneous
  Country: US (occurrence: US)
  Receive Date: 20170622
  Receipt Date: 20170622
  Transmission Date: 20170830
  Serious: Yes (Death, Other)
  Sender: FDA-Public Use
  Company Number: PHHY2017US086561

PATIENT
  Age: 72 Year
  Sex: Female

DRUGS (3)
  1. AZACITIDINE. [Concomitant]
     Active Substance: AZACITIDINE
     Indication: DYSPLASIA
     Route: 065
  2. GABAPENTIN. [Concomitant]
     Active Substance: GABAPENTIN
     Indication: PRODUCT USED FOR UNKNOWN INDICATION
     Route: 065
  3. PREDNISONE. [Suspect]
     Active Substance: PREDNISONE
     Indication: GRANULOMATOUS DERMATITIS
     Dosage: 10 MG, QD
     Route: 065

REACTIONS (6)
  - Multiple organ dysfunction syndrome [Fatal]
  - Pancytopenia [Unknown]
  - Disease progression [Unknown]
  - Anaemia [Unknown]
  - Lactic acidosis [Fatal]
  - Sepsis [Fatal]
